FAERS Safety Report 6825539-0 (Version None)
Quarter: 2010Q3

REPORT INFORMATION
  Report Type: 
  Country: None (occurrence: None)
  Receive Date: 20100708
  Receipt Date: 20080314
  Transmission Date: 20110219
  Serious: No
  Sender: FDA-Public Use
  Company Number: US-PFIZER INC-2006138802

PATIENT
  Sex: Female
  Weight: 63.5 kg

DRUGS (11)
  1. CHANTIX [Suspect]
     Indication: SMOKING CESSATION THERAPY
     Route: 048
     Dates: start: 20061029
  2. OXYCET [Concomitant]
     Route: 048
  3. ATROVENT [Concomitant]
     Route: 055
  4. ALBUTEROL [Concomitant]
     Route: 055
  5. COMBIVENT [Concomitant]
     Route: 055
  6. ESTROGENS [Concomitant]
     Route: 048
  7. PROGESTERONE [Concomitant]
     Route: 048
  8. LEXAPRO [Concomitant]
     Route: 048
  9. XANAX [Concomitant]
     Route: 048
  10. LEVOXYL [Concomitant]
     Route: 048
  11. ZANAFLEX [Concomitant]
     Route: 048

REACTIONS (3)
  - DRUG INEFFECTIVE [None]
  - NAUSEA [None]
  - VOMITING PROJECTILE [None]
